FAERS Safety Report 5976369-3 (Version None)
Quarter: 2008Q4

REPORT INFORMATION
  Report Type: 
  Country: None (occurrence: None)
  Receive Date: 20081202
  Receipt Date: 20081125
  Transmission Date: 20090506
  Serious: Yes (Other)
  Sender: FDA-Public Use
  Company Number: GB-ROXANE LABORATORIES, INC.-2008-RO-00283RO

PATIENT
  Age: 52 Year
  Sex: Female

DRUGS (1)
  1. AZATHIOPRINE [Suspect]
     Indication: CROHN'S DISEASE
     Dosage: 100MG
     Route: 048

REACTIONS (2)
  - HYPERSENSITIVITY [None]
  - SEPTAL PANNICULITIS [None]
